FAERS Safety Report 10496357 (Version 3)
Quarter: 2014Q4

REPORT INFORMATION
  Report Type: Report from Study
  Country: US (occurrence: US)
  Receive Date: 20141003
  Receipt Date: 20141103
  Transmission Date: 20150528
  Serious: Yes (Hospitalization)
  Sender: FDA-Public Use
  Company Number: US-ACTELION-A-US2014-105848

PATIENT
  Age: 50 Year
  Sex: Male

DRUGS (3)
  1. ADCIRCA [Concomitant]
     Active Substance: TADALAFIL
  2. TRACLEER [Suspect]
     Active Substance: BOSENTAN\BOSENTAN MONOHYDRATE
     Indication: PULMONARY ARTERIAL HYPERTENSION
     Dosage: UNK
     Route: 048
  3. VELETRI [Suspect]
     Active Substance: EPOPROSTENOL
     Indication: PULMONARY ARTERIAL HYPERTENSION
     Dosage: 22 NG/KG, PER MIN
     Route: 042
     Dates: start: 20121022

REACTIONS (3)
  - Pneumothorax [Unknown]
  - Diaphragmatic operation [Unknown]
  - Dyspnoea [Unknown]
